FAERS Safety Report 5576168-0 (Version None)
Quarter: 2007Q4

REPORT INFORMATION
  Report Type: 
  Country: None (occurrence: None)
  Receive Date: 20071130
  Receipt Date: 20070807
  Transmission Date: 20080405
  Serious: No
  Sender: FDA-Public Use
  Company Number: US200708001681

PATIENT
  Age: 51 Year
  Sex: Male
  Weight: 127 kg

DRUGS (12)
  1. BYETTA [Suspect]
     Indication: TYPE 2 DIABETES MELLITUS
     Dosage: 5 UG, 2/D, SUBCUTANEOUS ; 10 UG, 2/D, SUBCUTANEOUS
     Route: 058
     Dates: start: 20060101, end: 20060101
  2. BYETTA [Suspect]
     Indication: TYPE 2 DIABETES MELLITUS
     Dosage: 5 UG, 2/D, SUBCUTANEOUS ; 10 UG, 2/D, SUBCUTANEOUS
     Route: 058
     Dates: start: 20060101
  3. ASPIRIN [Concomitant]
  4. AVANDIA [Concomitant]
  5. KLOR-CON [Concomitant]
  6. GLIPIZIDE [Concomitant]
  7. DILTIAZEM [Concomitant]
  8. FURAZONE (FURAZOLIDONE) [Concomitant]
  9. LISINOPRIL [Concomitant]
  10. LEVOTHYROXINE SODIUM [Concomitant]
  11. LIPITOR [Concomitant]
  12. METFORMIN HCL [Concomitant]

REACTIONS (5)
  - BLOOD GLUCOSE FLUCTUATION [None]
  - INJECTION SITE BRUISING [None]
  - INJECTION SITE HAEMORRHAGE [None]
  - INJECTION SITE PAIN [None]
  - WEIGHT DECREASED [None]
